FAERS Safety Report 25374264 (Version 4)
Quarter: 2025Q4

REPORT INFORMATION
  Report Type: Spontaneous
  Country: US (occurrence: US)
  Receive Date: 20250529
  Receipt Date: 20251114
  Transmission Date: 20260118
  Serious: Yes (Other)
  Sender: ROCHE
  Company Number: US-ROCHE-10000293655

PATIENT
  Age: 37 Year
  Sex: Female

DRUGS (3)
  1. XOLAIR [Suspect]
     Active Substance: OMALIZUMAB
     Indication: Asthma
     Dosage: ONGOING, STRENGTH:75MG/0.5ML
     Route: 058
     Dates: start: 202310
  2. XOLAIR [Suspect]
     Active Substance: OMALIZUMAB
     Indication: Asthma
     Dosage: ONGOING, STRENGTH:300MG/2ML
     Route: 058
     Dates: start: 202310
  3. XOLAIR [Suspect]
     Active Substance: OMALIZUMAB
     Indication: Food allergy
     Dosage: STRENGTH:300MG/2ML
     Route: 058
     Dates: start: 202310

REACTIONS (4)
  - Off label use [Unknown]
  - Rubber sensitivity [Unknown]
  - Anaphylactic reaction [Unknown]
  - Food allergy [Unknown]

NARRATIVE: CASE EVENT DATE: 20250512
